FAERS Safety Report 9783918 (Version 1)
Quarter: 2013Q4

REPORT INFORMATION
  Report Type: Spontaneous
  Country: US (occurrence: US)
  Receive Date: 20131226
  Receipt Date: 20131226
  Transmission Date: 20140711
  Serious: No
  Sender: FDA-Public Use
  Company Number: US-PFIZER INC-2013364948

PATIENT
  Sex: Female

DRUGS (2)
  1. AMLODIPINE/ATORVASTATIN [Suspect]
     Indication: HYPERTENSION
     Dosage: UNK
  2. AMLODIPINE/ATORVASTATIN [Suspect]
     Indication: BLOOD CHOLESTEROL INCREASED

REACTIONS (3)
  - Headache [Unknown]
  - Dizziness [Unknown]
  - Drug ineffective [Unknown]
